FAERS Safety Report 4654671-5 (Version None)
Quarter: 2005Q2

REPORT INFORMATION
  Report Type: 
  Country: None (occurrence: None)
  Receive Date: 20050503
  Receipt Date: 20050503
  Transmission Date: 20051028
  Serious: Yes (Life-Threatening)
  Sender: FDA-Public Use
  Company Number: None

PATIENT
  Age: 3 Year
  Sex: Male
  Weight: 25.855 kg

DRUGS (2)
  1. TRILEPTAL [Suspect]
     Indication: CONVULSION
     Dosage: 5 ML TWICE A DAY  ORAL SUSPENSION
     Route: 048
     Dates: start: 20050312
  2. TRILEPTAL [Suspect]
     Indication: CONVULSION
     Dosage: 5 ML TWICE A DAY  ORAL SUSPENSION
     Route: 048
     Dates: start: 20050409

REACTIONS (1)
  - URTICARIA [None]
